FAERS Safety Report 20146163 (Version 1)
Quarter: 2021Q4

REPORT INFORMATION
  Report Type: Report from Study
  Country: FR (occurrence: FR)
  Receive Date: 20211203
  Receipt Date: 20211203
  Transmission Date: 20220303
  Serious: Yes (Hospitalization, Other)
  Sender: FDA-Public Use
  Company Number: FR-GILEAD-2021-0558886

PATIENT
  Age: 54 Year
  Sex: Female

DRUGS (21)
  1. BICTEGRAVIR\EMTRICITABINE\TENOFOVIR ALAFENAMIDE [Suspect]
     Active Substance: BICTEGRAVIR\EMTRICITABINE\TENOFOVIR ALAFENAMIDE
     Indication: HIV infection
     Dosage: UNK
     Route: 065
  2. DOLUTEGRAVIR [Concomitant]
     Active Substance: DOLUTEGRAVIR
     Indication: HIV infection
     Dosage: 50 UNK
     Route: 065
  3. RITONAVIR [Concomitant]
     Active Substance: RITONAVIR
     Indication: HIV infection
     Dosage: 100X2 UNK
     Route: 065
  4. DARUNAVIR [Concomitant]
     Active Substance: DARUNAVIR
     Indication: HIV infection
     Dosage: 600X2 UNK
     Route: 065
  5. ACYCLOVIR [Concomitant]
     Active Substance: ACYCLOVIR
     Indication: Product used for unknown indication
     Dosage: UNK
     Route: 065
     Dates: end: 20211122
  6. ERTAPENEM [Concomitant]
     Active Substance: ERTAPENEM
     Indication: Product used for unknown indication
     Route: 065
  7. VANCOMYCIN [Concomitant]
     Active Substance: VANCOMYCIN
     Indication: Product used for unknown indication
     Route: 065
  8. DAPTOMYCIN [Concomitant]
     Active Substance: DAPTOMYCIN
     Indication: Product used for unknown indication
     Route: 065
  9. ATOVAQUONE [Concomitant]
     Active Substance: ATOVAQUONE
     Indication: Product used for unknown indication
  10. STAVUDINE [Concomitant]
     Active Substance: STAVUDINE
     Indication: Antiretroviral therapy
     Route: 065
  11. AZT [Concomitant]
     Active Substance: ZIDOVUDINE
     Indication: Antiretroviral therapy
     Route: 065
  12. DIDANOSINE [Concomitant]
     Active Substance: DIDANOSINE
     Indication: Antiretroviral therapy
     Route: 065
  13. LAMIVUDINE [Concomitant]
     Active Substance: LAMIVUDINE
     Indication: Antiretroviral therapy
  14. TENOFOVIR DISOPROXIL FUMARATE [Concomitant]
     Active Substance: TENOFOVIR DISOPROXIL FUMARATE
     Indication: Antiretroviral therapy
     Route: 065
  15. ABACAVIR [Concomitant]
     Active Substance: ABACAVIR
     Indication: Antiretroviral therapy
  16. FOSCAVIR [Concomitant]
     Active Substance: FOSCARNET SODIUM
     Indication: Antiretroviral therapy
     Route: 065
  17. SAQUINAVIR [Concomitant]
     Active Substance: SAQUINAVIR
     Indication: Antiretroviral therapy
     Route: 065
  18. ATAZANAVIR [Concomitant]
     Active Substance: ATAZANAVIR
     Indication: Antiretroviral therapy
     Route: 065
  19. NELFINAVIR [Concomitant]
     Active Substance: NELFINAVIR
     Indication: Antiretroviral therapy
     Route: 065
  20. FOSAMPRENAVIR [Concomitant]
     Active Substance: FOSAMPRENAVIR
     Indication: Antiretroviral therapy
     Route: 065
  21. BICTEGRAVIR [Concomitant]
     Active Substance: BICTEGRAVIR
     Indication: Antiretroviral therapy
     Route: 065

REACTIONS (10)
  - Subdural haematoma [Unknown]
  - Herpes simplex meningitis [Unknown]
  - Ischaemia [Unknown]
  - Empyema [Unknown]
  - Blood HIV RNA increased [Unknown]
  - Encephalitis [Unknown]
  - CSF HIV escape syndrome [Unknown]
  - HIV-2 infection [Unknown]
  - Off label use [Unknown]
  - Genotype drug resistance test positive [Unknown]

NARRATIVE: CASE EVENT DATE: 20211001
